FAERS Safety Report 8501304 (Version 2)
Quarter: 2012Q4

REPORT INFORMATION
  Report Type: 
  Country: US (occurrence: US)
  Receive Date: 20120410
  Receipt Date: 20120830
  Transmission Date: 20130627
  Serious: Yes (Hospitalization)
  Sender: FDA-Public Use
  Company Number: US-BAYER-2012-032867

PATIENT
  Age: 23 Year
  Sex: Female
  Weight: 81.63 kg

DRUGS (4)
  1. YAZ [Suspect]
     Indication: CONTRACEPTION
     Dosage: UNK
     Dates: start: 200805, end: 200912
  2. YAZ [Suspect]
     Indication: PREMENSTRUAL SYNDROME
  3. CIPROFLOXACIN HCL [Concomitant]
     Dosage: 7 days
     Dates: start: 20081219
  4. LORTAB [Concomitant]

REACTIONS (8)
  - Gallbladder non-functioning [None]
  - Cholecystitis chronic [None]
  - Bile duct stone [None]
  - Anxiety [None]
  - Pain [None]
  - Injury [None]
  - Asthenia [None]
  - Emotional distress [None]
